FAERS Safety Report 18252531 (Version 1)
Quarter: 2020Q3

REPORT INFORMATION
  Report Type: Spontaneous
  Country: US (occurrence: US)
  Receive Date: 20200910
  Receipt Date: 20200910
  Transmission Date: 20201103
  Serious: Yes (Hospitalization, Other)
  Sender: FDA-Public Use
  Company Number: US-BRISTOL-MYERS SQUIBB COMPANY-BMS-2020-072794

PATIENT
  Age: 59 Year
  Sex: Male
  Weight: 113.3 kg

DRUGS (4)
  1. ELIQUIS [Suspect]
     Active Substance: APIXABAN
     Dosage: 2.5 MG TABLETS 2 IN THE MORNING 2 IN THE EVENING
     Route: 048
  2. ELIQUIS [Suspect]
     Active Substance: APIXABAN
     Indication: PRODUCT USED FOR UNKNOWN INDICATION
     Dosage: 5 MILLIGRAM, BID
     Route: 048
  3. METOPROLOL. [Suspect]
     Active Substance: METOPROLOL
     Dosage: 25MG 2 TIMES A DAY
     Route: 065
  4. METOPROLOL. [Suspect]
     Active Substance: METOPROLOL
     Indication: PRODUCT USED FOR UNKNOWN INDICATION
     Dosage: 25 MG 3 TABLETS A DAY
     Route: 065

REACTIONS (6)
  - Arthropathy [Unknown]
  - Dizziness [Unknown]
  - Cold sweat [Unknown]
  - Cardiac flutter [Unknown]
  - Back injury [Unknown]
  - Hot flush [Unknown]

NARRATIVE: CASE EVENT DATE: 20200901
